FAERS Safety Report 13110244 (Version 1)
Quarter: 2017Q1

REPORT INFORMATION
  Report Type: Spontaneous
  Country: US (occurrence: US)
  Receive Date: 20170112
  Receipt Date: 20170112
  Transmission Date: 20170428
  Serious: Yes (Other)
  Sender: FDA-Public Use
  Company Number: US-ROCHE-1210360

PATIENT
  Age: 67 Year
  Sex: Male

DRUGS (1)
  1. ACTIVASE [Suspect]
     Active Substance: ALTEPLASE
     Indication: BASILAR ARTERY THROMBOSIS
     Dosage: TOTAL DOSE OF 30 MG
     Route: 013

REACTIONS (1)
  - Drug ineffective [Unknown]
